FAERS Safety Report 8098558-7 (Version None)
Quarter: 2012Q1

REPORT INFORMATION
  Report Type: 
  Country: None (occurrence: None)
  Receive Date: 20120129
  Receipt Date: 20110913
  Transmission Date: 20120608
  Serious: No
  Sender: FDA-Public Use
  Company Number: US-ABBOTT-11P-163-0854865-00

PATIENT
  Sex: Male
  Weight: 89.892 kg

DRUGS (9)
  1. DIOVAN [Concomitant]
     Indication: HYPERTENSION
     Dosage: 160 DAILY
  2. MULTI-VITAMINS [Concomitant]
     Indication: VITAMIN SUPPLEMENTATION
  3. FISH OIL [Concomitant]
     Indication: SUPPLEMENTATION THERAPY
     Dosage: 1000 MG
  4. ASPIRIN [Concomitant]
     Indication: PROPHYLAXIS
     Dosage: 81 DAILY
  5. GARLIC [Concomitant]
     Indication: SUPPLEMENTATION THERAPY
     Dosage: 1000 MG
  6. SAW PALMETTO [Concomitant]
     Indication: PROSTATIC DISORDER
  7. HUMIRA [Suspect]
     Indication: CROHN'S DISEASE
     Route: 058
     Dates: start: 20110201
  8. NEXIUM [Suspect]
     Indication: GASTROOESOPHAGEAL REFLUX DISEASE
     Dates: end: 20110911
  9. Z-BEC [Concomitant]
     Indication: PROSTATIC DISORDER
     Dosage: MINERALS

REACTIONS (6)
  - PHARYNGEAL ERYTHEMA [None]
  - OROPHARYNGEAL PAIN [None]
  - MUCOSAL DISCOLOURATION [None]
  - DRY THROAT [None]
  - CHEST PAIN [None]
  - HEPATIC STEATOSIS [None]
